FAERS Safety Report 6204346-6 (Version None)
Quarter: 2009Q2

REPORT INFORMATION
  Report Type: 
  Country: None (occurrence: None)
  Receive Date: 20090518
  Receipt Date: 20090119
  Transmission Date: 20091009
  Serious: No
  Sender: FDA-Public Use
  Company Number: WAES 0901USA02543

PATIENT
  Age: 65 Year
  Sex: Male

DRUGS (12)
  1. JANUVIA [Suspect]
     Indication: DIABETES MELLITUS
     Dosage: BID/PO
     Route: 048
     Dates: start: 20080901
  2. FLOMAX [Concomitant]
  3. PLAVIX [Concomitant]
  4. ALPRAZOLAM [Concomitant]
  5. AMLODIPINE BESYLATE [Concomitant]
  6. FOLIC ACID [Concomitant]
  7. GLIPIZIDE [Concomitant]
  8. HYDRALAZINE HCL [Concomitant]
  9. ISOSORBIDE [Concomitant]
  10. LEVOTHYROXINE SODIUM [Concomitant]
  11. METFORMIN HYDROCHLORIDE [Concomitant]
  12. TERAZOSIN HYDROCHLORIDE [Concomitant]

REACTIONS (4)
  - DIZZINESS [None]
  - INAPPROPRIATE SCHEDULE OF DRUG ADMINISTRATION [None]
  - VISUAL IMPAIRMENT [None]
  - WRONG TECHNIQUE IN DRUG USAGE PROCESS [None]
